FAERS Safety Report 18688676 (Version 1)
Quarter: 2020Q4

REPORT INFORMATION
  Report Type: Spontaneous
  Country: US (occurrence: US)
  Receive Date: 20201231
  Receipt Date: 20201231
  Transmission Date: 20210114
  Serious: Yes (Death)
  Sender: FDA-Public Use
  Company Number: None

PATIENT
  Age: 79 Year
  Sex: Male

DRUGS (9)
  1. ONDANSETRON 8MG [Concomitant]
     Active Substance: ONDANSETRON
     Dates: start: 20201105
  2. BICALUTAMIDE 50 MG [Concomitant]
     Active Substance: BICALUTAMIDE
     Dates: start: 20201105
  3. DILAUDID 2MG [Concomitant]
     Dates: start: 20201105
  4. DURAGESIC 12MCG/HR PATCH [Concomitant]
     Dates: start: 20201105
  5. METOPROLOL TARTRATE 25MG [Concomitant]
     Active Substance: METOPROLOL TARTRATE
     Dates: start: 20201105
  6. PREDNISONE 10MG [Concomitant]
     Active Substance: PREDNISONE
     Dates: start: 20201105
  7. TYLENOL [Concomitant]
     Active Substance: ACETAMINOPHEN
     Dates: start: 20201105
  8. ABIRATERONE. [Suspect]
     Active Substance: ABIRATERONE ACETATE
     Route: 048
  9. ATORVASTATIN 10MG [Concomitant]
     Active Substance: ATORVASTATIN
     Dates: start: 20201105

REACTIONS (1)
  - Neoplasm malignant [None]

NARRATIVE: CASE EVENT DATE: 20201226
